FAERS Safety Report 12847315 (Version 2)
Quarter: 2016Q4

REPORT INFORMATION
  Report Type: Spontaneous
  Country: FR (occurrence: FR)
  Receive Date: 20161014
  Receipt Date: 20161017
  Transmission Date: 20170207
  Serious: Yes (Death)
  Sender: FDA-Public Use
  Company Number: FR-B.I. PHARMACEUTICALS,INC./RIDGEFIELD-2016-BI-066987

PATIENT
  Age: 78 Year
  Sex: Female

DRUGS (1)
  1. PRAXBIND [Suspect]
     Active Substance: IDARUCIZUMAB
     Indication: HAEMORRHAGE
     Route: 065

REACTIONS (1)
  - Haemorrhage [Fatal]
